FAERS Safety Report 6340663-7 (Version None)
Quarter: 2009Q3

REPORT INFORMATION
  Report Type: 
  Country: None (occurrence: None)
  Receive Date: 20090902
  Receipt Date: 20090902
  Transmission Date: 20100115
  Serious: Yes (Other)
  Sender: FDA-Public Use
  Company Number: None

PATIENT
  Age: 56 Year
  Sex: Female
  Weight: 117.9352 kg

DRUGS (2)
  1. NORETHINDRONE 5 MG. BARR [Suspect]
     Indication: CERVIX NEOPLASM
     Dosage: 12 DAYS ONCE DAILY PO
     Route: 048
     Dates: start: 20090817, end: 20090829
  2. NORETHINDRONE 5 MG. BARR [Suspect]
     Indication: HAEMORRHAGE
     Dosage: 12 DAYS ONCE DAILY PO
     Route: 048
     Dates: start: 20090817, end: 20090829

REACTIONS (10)
  - BLOOD GLUCOSE INCREASED [None]
  - DISORIENTATION [None]
  - DISSOCIATION [None]
  - FEELING ABNORMAL [None]
  - FEELING DRUNK [None]
  - MENTAL IMPAIRMENT [None]
  - ROAD TRAFFIC ACCIDENT [None]
  - THINKING ABNORMAL [None]
  - TINNITUS [None]
  - VISION BLURRED [None]
